FAERS Safety Report 10288319 (Version 1)
Quarter: 2014Q3

REPORT INFORMATION
  Report Type: Spontaneous
  Country: DE (occurrence: DE)
  Receive Date: 20140709
  Receipt Date: 20140709
  Transmission Date: 20150326
  Serious: Yes (Death, Other)
  Sender: FDA-Public Use
  Company Number: DE-ACTAVIS-2014-14693

PATIENT
  Age: 36 Year
  Sex: Male

DRUGS (3)
  1. PROPOFOL. [Interacting]
     Active Substance: PROPOFOL
     Indication: SUICIDE ATTEMPT
     Dosage: UNK
     Route: 042
  2. DIAZEPAM (UNKNOWN) [Suspect]
     Active Substance: DIAZEPAM
     Indication: SUICIDE ATTEMPT
     Dosage: UNK
     Route: 042
  3. MIDAZOLAM [Interacting]
     Active Substance: MIDAZOLAM\MIDAZOLAM HYDROCHLORIDE
     Indication: SUICIDE ATTEMPT
     Dosage: UNK
     Route: 042

REACTIONS (5)
  - Respiratory depression [Fatal]
  - Drug interaction [Fatal]
  - Completed suicide [Fatal]
  - Toxicity to various agents [Fatal]
  - Intentional overdose [Fatal]
